FAERS Safety Report 18585436 (Version 1)
Quarter: 2020Q4

REPORT INFORMATION
  Report Type: Spontaneous
  Country: SE (occurrence: SE)
  Receive Date: 20201207
  Receipt Date: 20201207
  Transmission Date: 20210114
  Serious: Yes (Other)
  Sender: FDA-Public Use
  Company Number: SE-MYLANLABS-2020M1098556

PATIENT
  Age: 47 Year
  Sex: Female
  Weight: 83 kg

DRUGS (4)
  1. CERAZETTE                          /00754001/ [Concomitant]
     Active Substance: DESOGESTREL
     Dosage: UNK
  2. ALVEDON [Concomitant]
     Active Substance: ACETAMINOPHEN
     Dosage: 1000 MILLIGRAM
     Dates: start: 20191025, end: 20201023
  3. NAPROXEN MYLAN [Suspect]
     Active Substance: NAPROXEN
     Indication: MIGRAINE
     Dosage: 750MG, MAXIMUM 1250 MG/DAY
  4. ESOMEPRAZOL JUBILANT [Concomitant]
     Dosage: UNK
     Dates: start: 20191025, end: 20201023

REACTIONS (7)
  - Hypoacusis [Not Recovered/Not Resolved]
  - Tremor [Not Recovered/Not Resolved]
  - Palpitations [Not Recovered/Not Resolved]
  - Dizziness [Not Recovered/Not Resolved]
  - Feeling cold [Not Recovered/Not Resolved]
  - Tinnitus [Not Recovered/Not Resolved]
  - Fatigue [Not Recovered/Not Resolved]

NARRATIVE: CASE EVENT DATE: 2019
